FAERS Safety Report 18238368 (Version 2)
Quarter: 2020Q3

REPORT INFORMATION
  Report Type: Report from Study
  Country: US (occurrence: US)
  Receive Date: 20200907
  Receipt Date: 20200929
  Transmission Date: 20201103
  Serious: Yes (Hospitalization)
  Sender: FDA-Public Use
  Company Number: US-BAUSCH-BL-2020-025195

PATIENT
  Age: 76 Year
  Sex: Female
  Weight: 92.62 kg

DRUGS (2)
  1. SILIQ [Suspect]
     Active Substance: BRODALUMAB
     Indication: PSORIASIS
     Dosage: STRENGTH 210 MILLIGRAM/1.5 ML, APPROXIMATELY THREE TO FOUR YEARS AGO
     Route: 058
  2. SILIQ [Suspect]
     Active Substance: BRODALUMAB
     Dosage: RESTARTED
     Route: 058

REACTIONS (6)
  - Bronchitis [Unknown]
  - Urinary tract infection [Unknown]
  - Anal incontinence [Not Recovered/Not Resolved]
  - Diarrhoea [Unknown]
  - Dehydration [Unknown]
  - Loss of personal independence in daily activities [Not Recovered/Not Resolved]

NARRATIVE: CASE EVENT DATE: 2020
